FAERS Safety Report 7444901-9 (Version None)
Quarter: 2011Q2

REPORT INFORMATION
  Report Type: 
  Country: None (occurrence: None)
  Receive Date: 20110429
  Receipt Date: 20110420
  Transmission Date: 20111010
  Serious: Yes (Hospitalization, Other)
  Sender: FDA-Public Use
  Company Number: SE-BRISTOL-MYERS SQUIBB COMPANY-15703234

PATIENT
  Age: 74 Year
  Sex: Male

DRUGS (12)
  1. TARCEVA [Concomitant]
     Dosage: FORMULATION:TRACEVA FILM COATED TAB 150MG
  2. PRIMPERAN TAB [Concomitant]
  3. MIANSERIN [Suspect]
     Route: 048
  4. LITHIONIT [Suspect]
     Dosage: FORMULATION:LITHIONIT 42MG PROLONGED RELEASE TAB
     Route: 048
  5. GLUCOPHAGE [Suspect]
     Indication: TYPE 2 DIABETES MELLITUS
     Route: 048
  6. GABAPENTIN [Suspect]
     Route: 048
  7. PRIMPERAN TAB [Concomitant]
     Dosage: PRIMPERAN TABS
  8. ACETAMINOPHEN [Concomitant]
  9. TETRALYSAL [Concomitant]
     Dosage: FORMULATION:HARD CAPS 300MG
  10. MINDIAB [Suspect]
     Indication: TYPE 2 DIABETES MELLITUS
     Dosage: FORMULATION:MINDIAB 2.5MG TABS
     Route: 048
  11. DOLCONTIN [Concomitant]
  12. MOVIPREP [Concomitant]

REACTIONS (4)
  - LACTIC ACIDOSIS [None]
  - PNEUMONIA [None]
  - RENAL FAILURE [None]
  - DEPRESSED LEVEL OF CONSCIOUSNESS [None]
